FAERS Safety Report 14587792 (Version 1)
Quarter: 2018Q1

REPORT INFORMATION
  Report Type: Spontaneous
  Country: US (occurrence: US)
  Receive Date: 20180301
  Receipt Date: 20180301
  Transmission Date: 20180509
  Serious: Yes (Hospitalization)
  Sender: FDA-Public Use
  Company Number: None

PATIENT
  Age: 75 Year
  Sex: Male

DRUGS (2)
  1. TEMOZOLOMIDE 5MGCAPSULE [Suspect]
     Active Substance: TEMOZOLOMIDE
     Indication: BRAIN NEOPLASM MALIGNANT
     Dosage: 2 CAPSULES QD MON - FRI BY MOUTH
     Route: 048
     Dates: start: 20180125
  2. TEMOZOLOMIDE 140MG CAPSULE [Suspect]
     Active Substance: TEMOZOLOMIDE
     Indication: BRAIN NEOPLASM MALIGNANT
     Dosage: 1 CAPSULE QD MON - FRI BY MOUTH
     Route: 048
     Dates: start: 20180125

REACTIONS (1)
  - Hospitalisation [None]
